FAERS Safety Report 9341232 (Version 1)
Quarter: 2013Q2

REPORT INFORMATION
  Report Type: Spontaneous
  Country: DE (occurrence: DE)
  Receive Date: 20130611
  Receipt Date: 20130611
  Transmission Date: 20140414
  Serious: Yes (Other)
  Sender: FDA-Public Use
  Company Number: DE-009507513-1306DEU002461

PATIENT
  Age: 89 Year
  Sex: Female

DRUGS (1)
  1. FOSAMAX EINMAL W?CHENTLICH 70 MG TABLETTEN [Suspect]
     Indication: FRACTURE
     Dosage: DAILY DOSE 70 MG
     Route: 048

REACTIONS (5)
  - Cardiac arrest [Recovering/Resolving]
  - Surgery [Recovering/Resolving]
  - Electrolyte imbalance [Recovering/Resolving]
  - Blood potassium decreased [Recovering/Resolving]
  - Overdose [Recovering/Resolving]
